FAERS Safety Report 5602054-3 (Version None)
Quarter: 2008Q1

REPORT INFORMATION
  Report Type: 
  Country: None (occurrence: None)
  Receive Date: 20080122
  Receipt Date: 20080122
  Transmission Date: 20080703
  Serious: No
  Sender: FDA-Public Use
  Company Number: None

PATIENT
  Sex: Female
  Weight: 61.2356 kg

DRUGS (1)
  1. CHANTIX [Suspect]
     Indication: SMOKING CESSATION THERAPY
     Dosage: 1 2X''S PO
     Route: 048
     Dates: start: 20070422, end: 20071022

REACTIONS (3)
  - ANGER [None]
  - NICOTINE DEPENDENCE [None]
  - PERSONALITY CHANGE [None]
